FAERS Safety Report 8129548 (Version 8)
Quarter: 2013Q4

REPORT INFORMATION
  Report Type: Report from Study
  Country: BE (occurrence: BE)
  Receive Date: 20110909
  Receipt Date: 20131211
  Transmission Date: 20140711
  Serious: Yes (Death, Hospitalization, Other)
  Sender: FDA-Public Use
  Company Number: BE-CELGENEUS-013-C5013-11090349

PATIENT
  Age: 67 Year
  Sex: Female
  Weight: 40.2 kg

DRUGS (8)
  1. CC-5013 [Suspect]
     Indication: MYELODYSPLASTIC SYNDROME
     Dosage: 5 MILLIGRAM
     Route: 048
     Dates: start: 20060731, end: 20090727
  2. CC-5013 [Suspect]
     Route: 048
     Dates: start: 20121207, end: 20130102
  3. CC-5013 [Suspect]
     Route: 048
     Dates: end: 20130124
  4. PLACEBO FOR CC-5013 [Suspect]
     Indication: MYELODYSPLASTIC SYNDROME
     Route: 048
     Dates: start: 20060731, end: 20061119
  5. TEMESTA [Concomitant]
     Indication: PRODUCT USED FOR UNKNOWN INDICATION
     Dosage: 1 MILLIGRAM
     Route: 065
  6. REVLIMID [Concomitant]
     Indication: MYELODYSPLASTIC SYNDROME
     Dosage: UNK
     Route: 048
     Dates: start: 20121207, end: 20130102
  7. DIFLUCAN [Concomitant]
     Indication: PRODUCT USED FOR UNKNOWN INDICATION
     Route: 041
     Dates: start: 20130104, end: 20130121
  8. RED BLOOD CELLS [Concomitant]
     Indication: PRODUCT USED FOR UNKNOWN INDICATION
     Dosage: 2PACKED
     Route: 065
     Dates: start: 20130104, end: 20130105

REACTIONS (2)
  - Oropharyngeal cancer stage III [Fatal]
  - Rectal cancer [Recovered/Resolved with Sequelae]
